FAERS Safety Report 6705330-6 (Version None)
Quarter: 2010Q2

REPORT INFORMATION
  Report Type: 
  Country: None (occurrence: None)
  Receive Date: 20100501
  Receipt Date: 20100420
  Transmission Date: 20101027
  Serious: Yes (Hospitalization, Other)
  Sender: FDA-Public Use
  Company Number: US-ELI_LILLY_AND_COMPANY-US201004000717

PATIENT
  Age: 20 Year
  Sex: Male

DRUGS (3)
  1. STRATTERA [Suspect]
     Dosage: 50 MG, UNK
  2. STRATTERA [Suspect]
     Dosage: 25 MG, DAILY (1/D)
  3. ADVIL COLD AND SINUS [Concomitant]

REACTIONS (6)
  - ASTHENIA [None]
  - ATRIAL FIBRILLATION [None]
  - FATIGUE [None]
  - JOINT SWELLING [None]
  - PALPITATIONS [None]
  - VENTRICULAR EXTRASYSTOLES [None]
